FAERS Safety Report 19660863 (Version 2)
Quarter: 2021Q3

REPORT INFORMATION
  Report Type: Spontaneous
  Country: US (occurrence: US)
  Receive Date: 20210805
  Receipt Date: 20210903
  Transmission Date: 20211014
  Serious: No
  Sender: FDA-Public Use
  Company Number: US-SA-2021SA256143

PATIENT
  Age: 58 Year
  Sex: Female

DRUGS (3)
  1. DUPIXENT [Suspect]
     Active Substance: DUPILUMAB
     Indication: ASTHMA
     Dosage: 600 MG, TOTAL
     Route: 058
  2. OPCON [Concomitant]
     Active Substance: NAPHAZOLINE HYDROCHLORIDE
  3. DUPIXENT [Suspect]
     Active Substance: DUPILUMAB
     Dosage: 300 MG, QOW
     Route: 058
     Dates: start: 20210716

REACTIONS (5)
  - Injection site reaction [Unknown]
  - Fatigue [Unknown]
  - Eye pruritus [Unknown]
  - Product use issue [Unknown]
  - Gastritis [Unknown]

NARRATIVE: CASE EVENT DATE: 20210728
